FAERS Safety Report 5679852-3 (Version None)
Quarter: 2008Q1

REPORT INFORMATION
  Report Type: 
  Country: None (occurrence: None)
  Receive Date: 20080324
  Receipt Date: 20080315
  Transmission Date: 20080703
  Serious: Yes (Other)
  Sender: FDA-Public Use
  Company Number: CHNY2008DE01305

PATIENT
  Sex: Male

DRUGS (1)
  1. OTRIVIN [Suspect]
     Indication: SINUSITIS
     Dosage: 100 ML, NASAL
     Route: 045
     Dates: start: 20080301, end: 20080301

REACTIONS (6)
  - ANOSMIA [None]
  - BURNING SENSATION [None]
  - FEELING ABNORMAL [None]
  - HYPERVENTILATION [None]
  - OVERDOSE [None]
  - WRONG TECHNIQUE IN DRUG USAGE PROCESS [None]
